FAERS Safety Report 5995282-9 (Version None)
Quarter: 2008Q4

REPORT INFORMATION
  Report Type: 
  Country: None (occurrence: None)
  Receive Date: 20081212
  Receipt Date: 20080924
  Transmission Date: 20090506
  Serious: No
  Sender: FDA-Public Use
  Company Number: US-ABBOTT-08P-163-0478310-00

PATIENT
  Sex: Male

DRUGS (8)
  1. HUMIRA [Suspect]
     Indication: PSORIASIS
     Dosage: 80MG LOADING DOSE
     Route: 058
     Dates: start: 20080831
  2. HUMIRA [Suspect]
     Route: 058
  3. ATORVASTATIN CALCIUM [Concomitant]
     Indication: BLOOD CHOLESTEROL INCREASED
     Route: 048
  4. CETIRIZINE HYDROCHLORIDE [Concomitant]
     Indication: SEASONAL ALLERGY
     Route: 048
  5. POTASSIUM GLUCONATE TAB [Concomitant]
     Indication: MINERAL SUPPLEMENTATION
     Route: 048
  6. PAROXETINE HCL [Concomitant]
     Indication: DEPRESSION
     Route: 048
  7. ALPRAZOLAM [Concomitant]
     Indication: DRUG USE FOR UNKNOWN INDICATION
     Dosage: AS NEEDED
     Route: 048
  8. CORCIDIA [Concomitant]
     Indication: HYPERTENSION
     Route: 048

REACTIONS (2)
  - NASOPHARYNGITIS [None]
  - RASH PRURITIC [None]
